FAERS Safety Report 5732978-8 (Version None)
Quarter: 2008Q2

REPORT INFORMATION
  Report Type: 
  Country: None (occurrence: None)
  Receive Date: 20080509
  Receipt Date: 20080505
  Transmission Date: 20081010
  Serious: Yes (Hospitalization, Other)
  Sender: FDA-Public Use
  Company Number: US-BAYER-200812021NA

PATIENT
  Age: 66 Year
  Sex: Female

DRUGS (16)
  1. LEUKINE [Suspect]
     Indication: SMALL CELL LUNG CANCER STAGE UNSPECIFIED
     Dosage: AS USED: 500 ?G
     Route: 058
     Dates: start: 20080112, end: 20080112
  2. NEUPOGEN [Concomitant]
  3. SIMVASTATIN [Concomitant]
  4. AMBIEN [Concomitant]
  5. ALBUTEROL [Concomitant]
  6. OMEPRAZOLE [Concomitant]
  7. TRIAMTERENE [Concomitant]
  8. METAMUCIL [Concomitant]
  9. COMPAZINE [Concomitant]
  10. PREDNISONE TAB [Concomitant]
  11. ANEXSIA [Concomitant]
  12. ATENOLOL [Concomitant]
  13. TESSALON [Concomitant]
  14. PROZAC [Concomitant]
  15. VITAMIN D [Concomitant]
  16. CHEMOTHERAPEUTICS NOS [Concomitant]
     Dates: start: 20080109

REACTIONS (9)
  - ANAPHYLACTIC REACTION [None]
  - BODY TEMPERATURE INCREASED [None]
  - CHOKING SENSATION [None]
  - DIZZINESS [None]
  - FALL [None]
  - HYPERVENTILATION [None]
  - INCOHERENT [None]
  - INJECTION SITE IRRITATION [None]
  - URINARY TRACT INFECTION [None]
